FAERS Safety Report 9734333 (Version 2)
Quarter: 2014Q1

REPORT INFORMATION
  Report Type: Spontaneous
  Country: JP (occurrence: JP)
  Receive Date: 20131206
  Receipt Date: 20140203
  Transmission Date: 20141002
  Serious: Yes (Death, Hospitalization, Other)
  Sender: FDA-Public Use
  Company Number: JP-AMGEN-JPNSP2013085260

PATIENT
  Age: 71 Year
  Sex: Female
  Weight: 43 kg

DRUGS (16)
  1. ENBREL [Suspect]
     Indication: RHEUMATOID ARTHRITIS
     Dosage: 12.5 MG, WEEKLY
     Route: 058
     Dates: start: 20090115, end: 20090528
  2. ENBREL [Suspect]
     Dosage: 25 MG, WEEKLY
     Route: 058
     Dates: start: 20090604, end: 20091202
  3. ENBREL [Suspect]
     Dosage: 25 MG, 2X/WEEK
     Route: 058
     Dates: start: 20091210, end: 20101202
  4. ENBREL [Suspect]
     Dosage: 50 MG, WEEKLY
     Route: 058
     Dates: start: 20101209, end: 20131017
  5. METHOTREXATE SODIUM [Suspect]
     Indication: RHEUMATOID ARTHRITIS
     Dosage: 4 MG, WEEKLY
     Route: 048
     Dates: start: 20080306, end: 20080619
  6. METHOTREXATE SODIUM [Suspect]
     Dosage: 6 MG, WEEKLY
     Route: 048
     Dates: start: 20080626, end: 20080911
  7. METHOTREXATE SODIUM [Suspect]
     Dosage: 8 MG, WEEKLY
     Route: 048
     Dates: start: 20080918, end: 20131020
  8. FOLIAMIN [Concomitant]
     Indication: PROPHYLAXIS
     Dosage: 5 MG, WEEKLY
     Route: 048
     Dates: start: 20080626, end: 20131021
  9. PREDONINE                          /00016201/ [Concomitant]
     Dosage: 5 MG, 1X/DAY
     Route: 048
     Dates: start: 20080417, end: 20090408
  10. PREDONINE                          /00016201/ [Concomitant]
     Dosage: 1 MG, 3X/DAY
     Route: 048
     Dates: start: 20090409, end: 20100129
  11. PREDONINE                          /00016201/ [Concomitant]
     Dosage: 1 MG, 2X/DAY
     Route: 048
     Dates: start: 20100128, end: 20100324
  12. PREDONINE                          /00016201/ [Concomitant]
     Dosage: 1 MG, 1X/DAY
     Route: 048
     Dates: start: 20100325, end: 201011
  13. INTEBAN [Concomitant]
     Dosage: 25 MG, 1X/DAY
     Route: 048
     Dates: start: 20100207, end: 20100519
  14. KENTAN [Concomitant]
     Dosage: 60 MG, 2X/DAY
     Route: 048
     Dates: start: 20100520, end: 20100908
  15. KENTAN [Concomitant]
     Dosage: 60 MG, 1X/DAY
     Route: 048
     Dates: start: 20100909, end: 20130320
  16. KENTAN [Concomitant]
     Dosage: 60 MG, 2X/DAY
     Route: 048
     Dates: start: 20130321

REACTIONS (6)
  - Arthropathy [Unknown]
  - Platelet count increased [Unknown]
  - Blood glucose increased [Unknown]
  - Respiratory failure [Fatal]
  - Herpes zoster [Recovering/Resolving]
  - Interstitial lung disease [Fatal]
